FAERS Safety Report 8301512-0 (Version None)
Quarter: 2012Q2

REPORT INFORMATION
  Report Type: 
  Country: None (occurrence: None)
  Receive Date: 20120420
  Receipt Date: 20120418
  Transmission Date: 20120825
  Serious: Yes (Congenital Anomaly)
  Sender: FDA-Public Use
  Company Number: GXKR2012DE001496

PATIENT

DRUGS (9)
  1. ZOLPIDEM [Concomitant]
     Indication: SLEEP DISORDER
     Route: 064
  2. FLUOXETINE [Suspect]
     Dosage: MATERNAL DOSE: 10 MG, DAILY
     Route: 064
  3. FOLIC ACID [Concomitant]
     Indication: PROPHYLAXIS OF NEURAL TUBE DEFECT
     Dosage: MATERNAL DOSE: 0.4 MG, UNK
     Route: 064
  4. SEDACUR [Concomitant]
     Indication: RESTLESSNESS
     Route: 064
  5. FLUOXETINE [Suspect]
     Dosage: MATERNAL DOSE: 20 MG, DAILY
     Route: 064
     Dates: start: 20100130, end: 20100817
  6. LEVOTHYROXINE SODIUM [Concomitant]
     Indication: HYPOTHYROIDISM
     Dosage: MATERNAL DOSE: 50 UG, DAILY
     Route: 064
  7. VALIUM [Concomitant]
     Indication: RESTLESSNESS
     Dosage: MATERNAL DOSE: 0.5 [MG/D ]/ THREE TIMES AT THE END OF JULY
     Route: 064
  8. RENNIE                             /00219301/ [Concomitant]
     Indication: GASTROOESOPHAGEAL REFLUX DISEASE
     Route: 064
  9. MOVIPREP [Concomitant]
     Indication: CONSTIPATION
     Route: 064

REACTIONS (2)
  - FOETAL EXPOSURE DURING PREGNANCY [None]
  - TRANSPOSITION OF THE GREAT VESSELS [None]
